FAERS Safety Report 7824417-8 (Version None)
Quarter: 2011Q4

REPORT INFORMATION
  Report Type: 
  Country: None (occurrence: None)
  Receive Date: 20111018
  Receipt Date: 20111018
  Transmission Date: 20120403
  Serious: Yes (Other)
  Sender: FDA-Public Use
  Company Number: None

PATIENT
  Sex: Male
  Weight: 57.4 kg

DRUGS (2)
  1. RISPERIDONE [Suspect]
     Indication: AGGRESSION
     Dosage: 2 MG TWICE DAILY ORALLY
     Route: 048
     Dates: start: 20090810
  2. RISPERIDONE [Suspect]
     Indication: AUTISM
     Dosage: 2 MG TWICE DAILY ORALLY
     Route: 048
     Dates: start: 20090810

REACTIONS (2)
  - AGGRESSION [None]
  - PRODUCT SUBSTITUTION ISSUE [None]
